FAERS Safety Report 14775485 (Version 2)
Quarter: 2018Q2

REPORT INFORMATION
  Report Type: Spontaneous
  Country: ES (occurrence: ES)
  Receive Date: 20180418
  Receipt Date: 20180420
  Transmission Date: 20180711
  Serious: Yes (Hospitalization)
  Sender: FDA-Public Use
  Company Number: ES-PFIZER INC-2018155738

PATIENT
  Age: 84 Year
  Sex: Female

DRUGS (14)
  1. ATORVASTATIN [Concomitant]
     Active Substance: ATORVASTATIN
     Dosage: 40 MG, DAILY
     Dates: start: 20161228, end: 20170107
  2. MEROPENEM /01250502/ [Concomitant]
     Active Substance: MEROPENEM
     Dosage: 1 GR, 3X/DAY (EACH 8H)
     Dates: start: 20161228, end: 20170107
  3. AMLODIPINE [Concomitant]
     Active Substance: AMLODIPINE BESYLATE
     Dosage: 5 MG, DAILY
     Dates: start: 20161228, end: 20170107
  4. ENOXAPARIN [Concomitant]
     Active Substance: ENOXAPARIN
     Dosage: 60 MG, 2X/DAY (EACH 12H)
     Dates: start: 20161228, end: 20170107
  5. FENTANYL. [Interacting]
     Active Substance: FENTANYL
     Indication: BACK PAIN
     Dosage: 25 UG (1 PATCH), DAILY (EVERY 24H)
     Route: 062
     Dates: start: 20161227, end: 20161230
  6. LEVOTHYROXINE. [Concomitant]
     Active Substance: LEVOTHYROXINE
     Dosage: 50 UG, DAILY
     Dates: start: 20161228, end: 20161230
  7. FUROSEMIDE. [Concomitant]
     Active Substance: FUROSEMIDE
     Dosage: 20 MG, 2X/DAY (EACH 12H)
     Dates: start: 20161228, end: 20170107
  8. LORAZEPAM. [Concomitant]
     Active Substance: LORAZEPAM
     Dosage: 1 MG, DAILY
     Dates: start: 20161228, end: 20161230
  9. AZATHIOPRINE. [Concomitant]
     Active Substance: AZATHIOPRINE
     Dosage: 100 MG, DAILY
     Dates: start: 20161228, end: 20170107
  10. OMEPRAZOLE. [Concomitant]
     Active Substance: OMEPRAZOLE
     Dosage: 20 MG, DAILY
     Dates: start: 20161228, end: 20161230
  11. ACETYLSALICYLIC ACID [Concomitant]
     Active Substance: ASPIRIN
     Dosage: 100 MG, DAILY
     Dates: start: 20161228, end: 20170107
  12. LINEZOLID. [Suspect]
     Active Substance: LINEZOLID
     Dosage: 600 MG, 2X/DAY (EACH 12H)
     Route: 042
     Dates: start: 20161228, end: 20161230
  13. DULOXETINE. [Interacting]
     Active Substance: DULOXETINE
     Indication: DEPRESSION
     Dosage: 30 MG, DAILY
     Dates: start: 20141013, end: 20161230
  14. PARACETAMOL [Concomitant]
     Active Substance: ACETAMINOPHEN
     Dosage: 1 G, 3X/DAY (EACH 8H)
     Dates: start: 20161228, end: 20170107

REACTIONS (2)
  - Serotonin syndrome [Recovered/Resolved]
  - Drug interaction [Unknown]

NARRATIVE: CASE EVENT DATE: 20161229
